FAERS Safety Report 21272722 (Version 3)
Quarter: 2023Q2

REPORT INFORMATION
  Report Type: Report from Study
  Country: PL (occurrence: PL)
  Receive Date: 20220831
  Receipt Date: 20230614
  Transmission Date: 20230722
  Serious: Yes (Hospitalization)
  Sender: FDA-Public Use
  Company Number: PL-AMGEN-POLCT2022149575

PATIENT
  Age: 72 Year
  Sex: Male
  Weight: 97.8 kg

DRUGS (10)
  1. EVOLOCUMAB [Suspect]
     Active Substance: EVOLOCUMAB
     Indication: Dyslipidaemia
     Dosage: UNK
     Route: 058
     Dates: start: 20191118
  2. ATORVASTATIN [Suspect]
     Active Substance: ATORVASTATIN
     Indication: Dyslipidaemia
     Dosage: 20 MILLIGRAM
     Route: 048
     Dates: start: 20201106
  3. Vivace [Concomitant]
     Dosage: 5 MILLIGRAM, QD
     Route: 048
     Dates: start: 202104
  4. INDAPAMIDE [Concomitant]
     Active Substance: INDAPAMIDE
     Dosage: 1.5 MILLIGRAM, QD
     Route: 048
     Dates: start: 20201105
  5. GLYCEROLI TRINITRAS [Concomitant]
     Dosage: UNK
     Dates: start: 20210706
  6. ASPIRIN [Concomitant]
     Active Substance: ASPIRIN
     Dosage: 75 MILLIGRAM, QD
     Route: 048
     Dates: start: 2009
  7. SPIRONOLACTONE [Concomitant]
     Active Substance: SPIRONOLACTONE
     Dosage: 25 MILLIGRAM, QD
     Route: 048
     Dates: start: 201908
  8. NEBIVOLOL HYDROCHLORIDE [Concomitant]
     Active Substance: NEBIVOLOL HYDROCHLORIDE
     Dosage: UNK
     Dates: start: 20191030
  9. APO-PENTOX [Concomitant]
     Dosage: 400 MILLIGRAM, QD
     Route: 048
     Dates: start: 2016
  10. PLAVIX [Concomitant]
     Active Substance: CLOPIDOGREL BISULFATE
     Dosage: 75 MILLIGRAM, QD
     Dates: start: 20220509

REACTIONS (1)
  - Subclavian artery stenosis [Recovered/Resolved]

NARRATIVE: CASE EVENT DATE: 20220821
